FAERS Safety Report 8879751 (Version 4)
Quarter: 2013Q1

REPORT INFORMATION
  Report Type: Report from Study
  Country: JP (occurrence: JP)
  Receive Date: 20121101
  Receipt Date: 20130220
  Transmission Date: 20140127
  Serious: Yes (Death, Hospitalization)
  Sender: FDA-Public Use
  Company Number: JP-JNJFOC-20121015822

PATIENT
  Age: 62 Year
  Sex: Male
  Weight: 79 kg

DRUGS (8)
  1. USTEKINUMAB [Suspect]
     Indication: PSORIASIS
     Route: 058
     Dates: start: 20120912
  2. USTEKINUMAB [Suspect]
     Indication: PSORIASIS
     Route: 058
     Dates: start: 20120810
  3. AROTINOLOL [Concomitant]
     Indication: HYPERTENSION
     Route: 048
  4. DORAL [Concomitant]
     Indication: INSOMNIA
     Route: 048
  5. LOXONIN [Concomitant]
     Route: 048
  6. MUCOSTA [Concomitant]
     Route: 048
  7. EBASTEL [Concomitant]
     Indication: PSORIASIS
     Route: 048
     Dates: start: 20120912
  8. RIZE [Concomitant]
     Route: 048

REACTIONS (1)
  - Cerebral haemorrhage [Fatal]
